FAERS Safety Report 4585674-7 (Version None)
Quarter: 2005Q1

REPORT INFORMATION
  Report Type: 
  Country: None (occurrence: None)
  Receive Date: 20050217
  Receipt Date: 20041007
  Transmission Date: 20050727
  Serious: Yes (Disabling, Other)
  Sender: FDA-Public Use
  Company Number: US-MERCK-0410USA01207

PATIENT
  Age: 75 Year
  Sex: Female

DRUGS (12)
  1. VIOXX [Suspect]
     Indication: ARTHRITIS
     Route: 048
     Dates: start: 19991001, end: 20000501
  2. VIOXX [Suspect]
     Route: 048
     Dates: end: 20040930
  3. SYNTHROID [Concomitant]
     Route: 065
  4. LORAZEPAM [Concomitant]
     Route: 065
  5. FLURAZEPAM [Concomitant]
     Route: 065
  6. ESTRACE [Concomitant]
     Route: 065
  7. XANAX [Concomitant]
     Route: 065
  8. FLONASE [Concomitant]
     Route: 065
  9. CLARITIN [Concomitant]
     Route: 065
  10. DALMANE [Concomitant]
     Route: 065
  11. ASPIRIN [Concomitant]
     Route: 065
  12. VITAMINS (UNSPECIFIED) [Concomitant]
     Route: 065

REACTIONS (22)
  - BRONCHITIS CHRONIC [None]
  - BUNDLE BRANCH BLOCK LEFT [None]
  - CARDIAC FAILURE CONGESTIVE [None]
  - CATARACT [None]
  - CORONARY ARTERY DISEASE [None]
  - DEPRESSION [None]
  - EATING DISORDER [None]
  - GASTROOESOPHAGEAL REFLUX DISEASE [None]
  - HYPOTRICHOSIS [None]
  - INSOMNIA [None]
  - ISCHAEMIC CARDIOMYOPATHY [None]
  - MITRAL VALVE INCOMPETENCE [None]
  - MYOCARDIAL INFARCTION [None]
  - NIGHT CRAMPS [None]
  - OESOPHAGEAL CANDIDIASIS [None]
  - PALPITATIONS [None]
  - PULMONARY HYPERTENSION [None]
  - SILENT MYOCARDIAL INFARCTION [None]
  - TRICUSPID VALVE INCOMPETENCE [None]
  - VERTIGO POSITIONAL [None]
  - VULVAL HAEMORRHAGE [None]
  - WEIGHT DECREASED [None]
